FAERS Safety Report 5894747-8 (Version None)
Quarter: 2008Q3

REPORT INFORMATION
  Report Type: 
  Country: None (occurrence: None)
  Receive Date: 20080924
  Receipt Date: 20080616
  Transmission Date: 20090109
  Serious: No
  Sender: FDA-Public Use
  Company Number: US-ASTRAZENECA-2008UW11811

PATIENT
  Age: 28 Year
  Sex: Female

DRUGS (8)
  1. SEROQUEL [Suspect]
     Indication: DEPRESSION
     Dosage: 50 MG DURING THE DAY, 50 MG AT NIGHT
     Route: 048
  2. SEROQUEL [Suspect]
     Indication: PANIC ATTACK
     Dosage: 50 MG DURING THE DAY, 50 MG AT NIGHT
     Route: 048
  3. SEROQUEL [Suspect]
     Route: 048
  4. SEROQUEL [Suspect]
     Route: 048
  5. KLONOPIN [Concomitant]
  6. TRAZODONE HCL [Concomitant]
  7. LEXAPRO [Concomitant]
  8. PROZAC [Concomitant]

REACTIONS (9)
  - ABDOMINAL PAIN UPPER [None]
  - CHEST PAIN [None]
  - DYSPNOEA [None]
  - FATIGUE [None]
  - MUSCULAR WEAKNESS [None]
  - MUSCULOSKELETAL CHEST PAIN [None]
  - MUSCULOSKELETAL STIFFNESS [None]
  - NIGHT SWEATS [None]
  - TINNITUS [None]
